FAERS Safety Report 23665818 (Version 2)
Quarter: 2024Q2

REPORT INFORMATION
  Report Type: Spontaneous
  Country: US (occurrence: US)
  Receive Date: 20240323
  Receipt Date: 20240402
  Transmission Date: 20240716
  Serious: Yes (Other)
  Sender: FDA-Public Use
  Company Number: US-UCBSA-2024013932

PATIENT
  Sex: Female

DRUGS (1)
  1. RYSTIGGO [Suspect]
     Active Substance: ROZANOLIXIZUMAB-NOLI
     Indication: Myasthenia gravis
     Dosage: UNK UNK, WEEKLY (QW), WEEKLY IN SIX WEEK CYCLES
     Route: 058
     Dates: start: 20230727

REACTIONS (3)
  - Myasthenia gravis [Unknown]
  - Therapeutic response shortened [Unknown]
  - Loss of personal independence in daily activities [Unknown]

NARRATIVE: CASE EVENT DATE: 20230701
